FAERS Safety Report 6517861-2 (Version None)
Quarter: 2009Q4

REPORT INFORMATION
  Report Type: 
  Country: None (occurrence: None)
  Receive Date: 20091224
  Receipt Date: 20091221
  Transmission Date: 20100525
  Serious: Yes (Death)
  Sender: FDA-Public Use
  Company Number: PHHY2009GB46759

PATIENT
  Sex: Female

DRUGS (6)
  1. CLOZARIL [Suspect]
     Indication: SCHIZOPHRENIA
     Dosage: UNK
     Dates: start: 19970110
  2. SULPIRIDE [Concomitant]
     Indication: SCHIZOPHRENIA
     Dosage: 1600 MG DAILY FOR OVER 2 YEARS
     Route: 048
  3. SERTRALINE HCL [Concomitant]
     Indication: DEPRESSION
     Dosage: 100MG DAILY FOR MORE THAN 2 YEARS
     Route: 048
  4. SIMVASTATIN [Concomitant]
     Dosage: FOR MORE THAN 2 YEARS
     Route: 048
  5. ASPIRIN [Concomitant]
     Dosage: FOR MORE TAHN 2 YEARS
     Route: 048
  6. METFORMIN HCL [Concomitant]
     Dosage: FOR MORE THAN 2 YEARS
     Route: 048

REACTIONS (1)
  - CHOKING [None]
